FAERS Safety Report 6432819-X (Version None)
Quarter: 2009Q4

REPORT INFORMATION
  Report Type: 
  Country: None (occurrence: None)
  Receive Date: 20091109
  Receipt Date: 20091103
  Transmission Date: 20100525
  Serious: Yes (Hospitalization)
  Sender: FDA-Public Use
  Company Number: A0815833A

PATIENT
  Age: 44 Year
  Sex: Female

DRUGS (1)
  1. AVANDIA [Suspect]
     Indication: DIABETES MELLITUS
     Route: 048
     Dates: start: 20000501, end: 20061001

REACTIONS (3)
  - ACUTE MYOCARDIAL INFARCTION [None]
  - ANXIETY [None]
  - DEPRESSION [None]
